FAERS Safety Report 20308249 (Version 1)
Quarter: 2022Q1

REPORT INFORMATION
  Report Type: Spontaneous
  Country: US (occurrence: US)
  Receive Date: 20220107
  Receipt Date: 20220107
  Transmission Date: 20220423
  Serious: No
  Sender: FDA-Public Use
  Company Number: ENDG21-04334

PATIENT
  Age: 40 Year
  Sex: Female

DRUGS (1)
  1. PITOCIN [Suspect]
     Active Substance: OXYTOCIN
     Indication: Induced labour
     Dosage: 10 UNITS/ML (32 UNITS PER HOUR), UNKNOWN
     Route: 065
     Dates: start: 20210630

REACTIONS (2)
  - Extra dose administered [Recovered/Resolved]
  - Therapeutic product effect decreased [Unknown]

NARRATIVE: CASE EVENT DATE: 20210701
